FAERS Safety Report 23404416 (Version 2)
Quarter: 2024Q2

REPORT INFORMATION
  Report Type: Report from Study
  Country: US (occurrence: US)
  Receive Date: 20240116
  Receipt Date: 20240529
  Transmission Date: 20240716
  Serious: No
  Sender: FDA-Public Use
  Company Number: US-BRISTOL-MYERS SQUIBB COMPANY-2024-005497

PATIENT
  Age: 28 Year
  Sex: Male
  Weight: 92.99 kg

DRUGS (2)
  1. ZEPOSIA [Suspect]
     Active Substance: OZANIMOD HYDROCHLORIDE
     Indication: Colitis ulcerative
     Dosage: FREQUENCY: TAKE 0.23 MG BY MOUTH 1 TIME A DAY FOR 4 DAYS, THEN TAKE 0.46 MG 1 TIME A DAY FOR 3DAYS,
     Route: 048
     Dates: start: 202312
  2. ZEPOSIA [Suspect]
     Active Substance: OZANIMOD HYDROCHLORIDE
     Dosage: FREQUENCY: TAKE 0.23 MG BY MOUTH 1 TIME A DAY FOR 4 DAYS, THEN TAKE 0.46 MG 1 TIME A DAY FOR 3DAYS,
     Route: 048
     Dates: start: 202401

REACTIONS (11)
  - Colitis ulcerative [Unknown]
  - Heart rate decreased [Unknown]
  - Blood pressure systolic decreased [Unknown]
  - Nasopharyngitis [Unknown]
  - Hypersensitivity [Unknown]
  - Oropharyngeal pain [Unknown]
  - Dysphagia [Unknown]
  - Pharyngeal swelling [Unknown]
  - Insomnia [Unknown]
  - Sneezing [Unknown]
  - Obstruction [Unknown]

NARRATIVE: CASE EVENT DATE: 20240522
